FAERS Safety Report 12562978 (Version 1)
Quarter: 2016Q3

REPORT INFORMATION
  Report Type: Not Available
  Country: JP (occurrence: JP)
  Receive Date: 20160715
  Receipt Date: 20160715
  Transmission Date: 20161109
  Serious: Yes (Hospitalization, Other)
  Sender: FDA-Public Use
  Company Number: JP-AKORN-35060

PATIENT
  Age: 11 Year
  Sex: Male

DRUGS (1)
  1. VALPROIC ACID ORAL SOLUTION [Suspect]
     Active Substance: VALPROIC ACID

REACTIONS (7)
  - Protein-losing gastroenteropathy [None]
  - Epilepsy [None]
  - Immune thrombocytopenic purpura [None]
  - Abdominal distension [None]
  - Oedema [None]
  - Diarrhoea [None]
  - Infection susceptibility increased [None]
